FAERS Safety Report 16801306 (Version 1)
Quarter: 2019Q3

REPORT INFORMATION
  Report Type: Spontaneous
  Country: IN (occurrence: IN)
  Receive Date: 20190912
  Receipt Date: 20190912
  Transmission Date: 20191005
  Serious: Yes (Death, Life-Threatening, Other)
  Sender: FDA-Public Use
  Company Number: IN-AMGEN-INDSP2019147433

PATIENT
  Age: 55 Year
  Sex: Female

DRUGS (7)
  1. BORTEZOMIB. [Concomitant]
     Active Substance: BORTEZOMIB
     Indication: PLASMA CELL MYELOMA
  2. MELPHALAN. [Concomitant]
     Active Substance: MELPHALAN
     Dosage: 200 MILLIGRAM/SQ. METER
     Dates: start: 201703
  3. FILGRASTIM [Suspect]
     Active Substance: FILGRASTIM
     Indication: AUTOLOGOUS HAEMATOPOIETIC STEM CELL TRANSPLANT
     Dosage: 5 MICROGRAM/KILOGRAM
     Route: 065
     Dates: start: 201703
  4. CYCLOPHOSPHAMIDE. [Concomitant]
     Active Substance: CYCLOPHOSPHAMIDE
     Indication: PLASMA CELL MYELOMA
  5. DEXAMETHASONE. [Concomitant]
     Active Substance: DEXAMETHASONE
     Indication: HAEMOPHAGOCYTIC LYMPHOHISTIOCYTOSIS
  6. FILGRASTIM [Suspect]
     Active Substance: FILGRASTIM
     Indication: HAEMATOPOIETIC STEM CELL MOBILISATION
  7. DEXAMETHASONE. [Concomitant]
     Active Substance: DEXAMETHASONE
     Indication: PLASMA CELL MYELOMA
     Dosage: UNK, LATER INCREASED TO 24 MILLIGRAM

REACTIONS (21)
  - Thrombotic microangiopathy [Unknown]
  - Haemoptysis [Unknown]
  - Respiratory distress [Unknown]
  - Thrombocytopenia [Unknown]
  - Blood bilirubin increased [Unknown]
  - Diarrhoea [Unknown]
  - Oliguria [Fatal]
  - Hypertension [Unknown]
  - Anaemia [Unknown]
  - Engraftment syndrome [Recovering/Resolving]
  - Febrile neutropenia [Unknown]
  - Hypotension [Fatal]
  - Haemophagocytic lymphohistiocytosis [Unknown]
  - Gingival bleeding [Unknown]
  - Tachycardia [Unknown]
  - Haematuria [Unknown]
  - Pulmonary toxicity [Unknown]
  - Metabolic acidosis [Fatal]
  - Tachypnoea [Unknown]
  - White blood cell count decreased [Unknown]
  - Mucosal inflammation [Unknown]

NARRATIVE: CASE EVENT DATE: 2017
